FAERS Safety Report 22701437 (Version 2)
Quarter: 2025Q1

REPORT INFORMATION
  Report Type: Report from Study
  Country: US (occurrence: US)
  Receive Date: 20230713
  Receipt Date: 20250110
  Transmission Date: 20250409
  Serious: No
  Sender: AMGEN
  Company Number: US-AMGEN-USASP2023120779

PATIENT
  Age: 77 Year
  Sex: Female

DRUGS (6)
  1. PROLIA [Suspect]
     Active Substance: DENOSUMAB
     Indication: Osteoporosis
     Dosage: 60 MILLIGRAM, Q6MO
     Route: 058
     Dates: start: 2021
  2. PROLIA [Suspect]
     Active Substance: DENOSUMAB
     Indication: Fracture
  3. PROLIA [Suspect]
     Active Substance: DENOSUMAB
     Indication: Bone density abnormal
  4. ROSUVASTATIN [Concomitant]
     Active Substance: ROSUVASTATIN
  5. ZESTRIL [Concomitant]
     Active Substance: LISINOPRIL
  6. ASPIRIN [Concomitant]
     Active Substance: ASPIRIN

REACTIONS (6)
  - Wrist fracture [Recovering/Resolving]
  - Rib fracture [Recovering/Resolving]
  - Fracture [Recovering/Resolving]
  - Fall [Recovering/Resolving]
  - Off label use [Unknown]
  - Product communication issue [Recovering/Resolving]

NARRATIVE: CASE EVENT DATE: 20210101
